FAERS Safety Report 20408111 (Version 6)
Quarter: 2022Q2

REPORT INFORMATION
  Report Type: Report from Study
  Country: US (occurrence: US)
  Receive Date: 20220201
  Receipt Date: 20220606
  Transmission Date: 20220720
  Serious: No
  Sender: FDA-Public Use
  Company Number: US-NOVARTISTESTPH-NVSC2022US020675

PATIENT
  Sex: Female

DRUGS (1)
  1. PIQRAY [Suspect]
     Active Substance: ALPELISIB
     Indication: Product used for unknown indication
     Dosage: UNK
     Route: 048

REACTIONS (10)
  - Lip swelling [Unknown]
  - Angular cheilitis [Unknown]
  - Muscle spasms [Unknown]
  - Peripheral swelling [Recovered/Resolved]
  - Rash [Recovered/Resolved]
  - Rash [Unknown]
  - Blood glucose increased [Unknown]
  - Dry skin [Recovered/Resolved]
  - Diarrhoea [Unknown]
  - Alopecia [Unknown]
